FAERS Safety Report 11000986 (Version 2)
Quarter: 2016Q2

REPORT INFORMATION
  Report Type: Spontaneous
  Country: US (occurrence: US)
  Receive Date: 20150408
  Receipt Date: 20160412
  Transmission Date: 20160815
  Serious: No
  Sender: FDA-Public Use
  Company Number: US-SA-2014SA148993

PATIENT
  Sex: Female

DRUGS (1)
  1. ALLEGRA [Suspect]
     Active Substance: FEXOFENADINE HYDROCHLORIDE
     Indication: SEASONAL ALLERGY
     Dosage: TAKEN FROM - 7-8 YRS
     Route: 048

REACTIONS (5)
  - Rhinorrhoea [Unknown]
  - Bronchitis [Unknown]
  - Headache [Unknown]
  - Wheezing [Unknown]
  - Malaise [Unknown]
